FAERS Safety Report 9247823 (Version 1)
Quarter: 2013Q1

REPORT INFORMATION
  Report Type: Spontaneous
  Country: US (occurrence: None)
  Receive Date: 20121130
  Receipt Date: 20121130
  Transmission Date: 20140127
  Serious: Yes (Other)
  Sender: FDA-Public Use
  Company Number: 344073

PATIENT
  Age: 52 Year
  Sex: Female
  Weight: 102.5 kg

DRUGS (3)
  1. NOVOLOG [Suspect]
     Indication: TYPE 2 DIABETES MELLITUS
     Dosage: 3-5 UNITS SLIDING SCALE AFTER EACH MEAL, SUBCUTANEOUS
     Route: 058
     Dates: end: 2005
  2. LEVEMIR [Suspect]
     Indication: TYPE 2 DIABETES MELLITUS
     Dosage: 80 U,
     Route: 058
     Dates: start: 2005
  3. METFORMIN (METFORMIN) ONGOING [Concomitant]

REACTIONS (2)
  - Wrong drug administered [None]
  - Blood glucose decreased [None]
